FAERS Safety Report 5958311-4 (Version None)
Quarter: 2008Q4

REPORT INFORMATION
  Report Type: 
  Country: None (occurrence: None)
  Receive Date: 20081119
  Receipt Date: 20081113
  Transmission Date: 20090506
  Serious: Yes (Hospitalization)
  Sender: FDA-Public Use
  Company Number: CG-MERCK-0811USA02358

PATIENT
  Age: 36 Year
  Sex: Male

DRUGS (1)
  1. STROMECTOL [Suspect]
     Indication: ONCHOCERCIASIS
     Route: 048
     Dates: start: 20071201, end: 20071201

REACTIONS (6)
  - ARTHRALGIA [None]
  - DIPLEGIA [None]
  - DISCOMFORT [None]
  - GAIT DISTURBANCE [None]
  - MYALGIA [None]
  - OCULAR HYPERAEMIA [None]
